FAERS Safety Report 9098098 (Version 2)
Quarter: 2013Q3

REPORT INFORMATION
  Report Type: Spontaneous
  Country: IE (occurrence: IE)
  Receive Date: 20130213
  Receipt Date: 20130930
  Transmission Date: 20140515
  Serious: Yes (Life-Threatening, Hospitalization)
  Sender: FDA-Public Use
  Company Number: IE-009507513-1301IRL009226

PATIENT
  Age: 64 Year
  Sex: Male
  Weight: 105 kg

DRUGS (8)
  1. BRIDION [Suspect]
     Indication: NEUROMUSCULAR BLOCKADE REVERSAL
     Dosage: 2 ML, ONCE
     Dates: start: 20110330
  2. BRIDION [Suspect]
     Dosage: 2 ML, ONCE
     Dates: start: 20121213
  3. ESMERON [Concomitant]
     Indication: INDUCTION OF ANAESTHESIA
     Dosage: UNK
     Dates: start: 20110330
  4. ESMERON [Concomitant]
     Dosage: 40 DF, UNK
     Dates: start: 20121213
  5. FENTANYL [Concomitant]
     Indication: INDUCTION OF ANAESTHESIA
     Dosage: UNK
     Dates: start: 20110330
  6. FENTANYL [Concomitant]
     Dosage: 100 DF, UNK
     Dates: start: 20121213
  7. PROPOFOL [Concomitant]
     Indication: INDUCTION OF ANAESTHESIA
     Dosage: UNK
     Dates: start: 20110330
  8. PROPOFOL [Concomitant]
     Dosage: 200 DF, UNK
     Dates: start: 20121213

REACTIONS (5)
  - Hypoxia [Recovering/Resolving]
  - Bronchospasm [Recovering/Resolving]
  - Rash maculo-papular [Recovering/Resolving]
  - Rash maculo-papular [Unknown]
  - Wheezing [Recovered/Resolved]
